FAERS Safety Report 6820435-7 (Version None)
Quarter: 2010Q3

REPORT INFORMATION
  Report Type: 
  Country: None (occurrence: None)
  Receive Date: 20100707
  Receipt Date: 20100623
  Transmission Date: 20110219
  Serious: Yes (Hospitalization)
  Sender: FDA-Public Use
  Company Number: US-MYLANLABS-2010S1011182

PATIENT
  Age: 39 Year
  Sex: Female

DRUGS (3)
  1. BUPROPION HCL [Suspect]
     Route: 065
  2. NORTRIPTYLINE [Suspect]
     Route: 065
  3. TRAMADOL [Suspect]
     Route: 065

REACTIONS (2)
  - CONVULSION [None]
  - SPINAL FRACTURE [None]
